FAERS Safety Report 13308955 (Version 1)
Quarter: 2017Q1

REPORT INFORMATION
  Report Type: Spontaneous
  Country: US (occurrence: US)
  Receive Date: 20170308
  Receipt Date: 20170308
  Transmission Date: 20170428
  Serious: No
  Sender: FDA-Public Use
  Company Number: None

PATIENT
  Age: 57 Year
  Sex: Female
  Weight: 56.25 kg

DRUGS (10)
  1. VITAMIN B COMPLEX [Concomitant]
     Active Substance: CYANOCOBALAMIN\DEXPANTHENOL\NIACINAMIDE\PYRIDOXINE HYDROCHLORIDE\RIBOFLAVIN 5^-PHOSPHATE SODIUM\THIAMINE HYDROCHLORIDE\VITAMIN B COMPLEX
  2. MAGNESIUM [Concomitant]
     Active Substance: MAGNESIUM
  3. PRILOSEC [Concomitant]
     Active Substance: OMEPRAZOLE MAGNESIUM
  4. TRAMADOL. [Concomitant]
     Active Substance: TRAMADOL
  5. FISH OIL [Concomitant]
     Active Substance: FISH OIL
  6. PROBIOTIC [Concomitant]
     Active Substance: PROBIOTICS NOS
  7. VITAMIN D3 [Concomitant]
     Active Substance: CHOLECALCIFEROL
  8. CYMBALTA [Concomitant]
     Active Substance: DULOXETINE HYDROCHLORIDE
  9. COQ10 [Concomitant]
     Active Substance: UBIDECARENONE
  10. GABAPENTIN. [Suspect]
     Active Substance: GABAPENTIN
     Indication: NEURALGIA
     Route: 048
     Dates: start: 20161021, end: 20161224

REACTIONS (3)
  - Anxiety [None]
  - Withdrawal syndrome [None]
  - Sinus congestion [None]

NARRATIVE: CASE EVENT DATE: 20170102
